FAERS Safety Report 5401203-X (Version None)
Quarter: 2007Q3

REPORT INFORMATION
  Report Type: 
  Country: None (occurrence: None)
  Receive Date: 20070726
  Receipt Date: 20070715
  Transmission Date: 20080115
  Serious: Yes (Death, Other)
  Sender: FDA-Public Use
  Company Number: 07H-163-0312887-00

PATIENT
  Age: 8 Month
  Sex: Female
  Weight: 4.1 kg

DRUGS (2)
  1. PROPOFOL [Suspect]
     Indication: INDUCTION OF ANAESTHESIA
     Dosage: 40  MG, INTRAVENOUS, 30 MG, INTRAVENOUS
     Route: 042
  2. FENTANYL CITRATE [Suspect]
     Indication: INDUCTION OF ANAESTHESIA
     Dosage: 10 MCG, INTRAVENOUS
     Route: 042

REACTIONS (5)
  - BRADYCARDIA [None]
  - ELECTROMECHANICAL DISSOCIATION [None]
  - OVERDOSE [None]
  - OXYGEN SATURATION DECREASED [None]
  - VENTRICULAR FIBRILLATION [None]
